FAERS Safety Report 9816533 (Version 2)
Quarter: 2014Q1

REPORT INFORMATION
  Report Type: Spontaneous
  Country: US (occurrence: US)
  Receive Date: 20140114
  Receipt Date: 20140114
  Transmission Date: 20141002
  Serious: Yes (Hospitalization)
  Sender: FDA-Public Use
  Company Number: US-B.I. PHARMACEUTICALS,INC./RIDGEFIELD-2013-BI-22828BP

PATIENT
  Sex: Male
  Weight: 89.81 kg

DRUGS (11)
  1. PRADAXA [Suspect]
     Indication: ATRIAL FIBRILLATION
     Dates: start: 20110502, end: 20121029
  2. ASPIRIN [Concomitant]
     Dosage: 81 MG
  3. PACERONE [Concomitant]
  4. CORDARONE [Concomitant]
     Dosage: 200 MG
  5. LEVOTHYROXINE [Concomitant]
     Dosage: 50 MCG
  6. LIPITOR [Concomitant]
     Dosage: 80 MG
  7. ZESTRIL [Concomitant]
  8. BECLOMETHASONE [Concomitant]
  9. SINGULAIR [Concomitant]
     Dosage: 10 MG
  10. SYSTANE [Concomitant]
  11. XOLAIR [Concomitant]

REACTIONS (2)
  - Subdural haematoma [Recovered/Resolved]
  - Haemorrhage intracranial [Recovered/Resolved]
